FAERS Safety Report 21515166 (Version 1)
Quarter: 2022Q4

REPORT INFORMATION
  Report Type: Spontaneous
  Country: US (occurrence: US)
  Receive Date: 20221027
  Receipt Date: 20221027
  Transmission Date: 20230113
  Serious: Yes (Other)
  Sender: FDA-Public Use
  Company Number: US-MYLANLABS-2022M1118074

PATIENT
  Age: 49 Year
  Sex: Male

DRUGS (4)
  1. NAPROXEN [Suspect]
     Active Substance: NAPROXEN
     Indication: Shoulder injury related to vaccine administration
     Dosage: 500 MILLIGRAM
     Route: 048
  2. TRIAMCINOLONE [Suspect]
     Active Substance: TRIAMCINOLONE
     Indication: Shoulder injury related to vaccine administration
     Dosage: 40 MILLIGRAM
     Route: 065
  3. DICLOFENAC [Suspect]
     Active Substance: DICLOFENAC
     Indication: Shoulder injury related to vaccine administration
     Dosage: UNK
     Route: 061
  4. INFLUENZA VIRUS VACCINE [Concomitant]
     Active Substance: INFLUENZA VIRUS VACCINE
     Indication: Immunisation
     Dosage: 0.5ML QUADRIVALENT, PRESERVATIVE-FREE
     Route: 030

REACTIONS (1)
  - Drug ineffective [Unknown]
